FAERS Safety Report 17727358 (Version 6)
Quarter: 2020Q2

REPORT INFORMATION
  Report Type: Report from Study
  Country: IN (occurrence: IN)
  Receive Date: 20200430
  Receipt Date: 20200622
  Transmission Date: 20200714
  Serious: Yes (Other)
  Sender: FDA-Public Use
  Company Number: NVSC2020IN112998

PATIENT
  Age: 68 Year
  Sex: Male
  Weight: 86 kg

DRUGS (3)
  1. SULISENT [Suspect]
     Active Substance: CANAGLIFLOZIN
     Indication: DIABETES MELLITUS
     Dosage: 100 MG
     Route: 048
  2. DIAMICRON [Concomitant]
     Active Substance: GLICLAZIDE
     Indication: PRODUCT USED FOR UNKNOWN INDICATION
     Dosage: UNK
     Route: 065
  3. GALVUS MET [Suspect]
     Active Substance: METFORMIN HYDROCHLORIDE\VILDAGLIPTIN
     Indication: DIABETES MELLITUS
     Dosage: 1 DF, BID (1-0-1, START: SINCE 4 YEARS BACK) (6.0)
     Route: 048

REACTIONS (5)
  - High density lipoprotein decreased [Unknown]
  - Blood triglycerides increased [Unknown]
  - Hyperglycaemia [Not Recovered/Not Resolved]
  - Body mass index increased [Unknown]
  - Hyperglycaemia [Recovered/Resolved with Sequelae]

NARRATIVE: CASE EVENT DATE: 20200113
